FAERS Safety Report 22604365 (Version 1)
Quarter: 2023Q2

REPORT INFORMATION
  Report Type: Spontaneous
  Country: US (occurrence: None)
  Receive Date: 20230614
  Receipt Date: 20230614
  Transmission Date: 20230721
  Serious: Yes (Hospitalization)
  Sender: FDA-Public Use
  Company Number: None

PATIENT
  Sex: Male

DRUGS (9)
  1. ABIRATERONE [Suspect]
     Active Substance: ABIRATERONE
     Indication: Prostate cancer
     Dosage: 4T QD PO
     Route: 048
  2. PREDNISONE [Suspect]
     Active Substance: PREDNISONE
     Dosage: 1T BID PO?
     Route: 048
  3. FAMOTIDINE [Concomitant]
  4. ATORVASTATIN [Concomitant]
  5. HYDROCHLOROTHIAZIDE [Concomitant]
     Active Substance: HYDROCHLOROTHIAZIDE
  6. POTASSIUM CHLORIDE [Concomitant]
     Active Substance: POTASSIUM CHLORIDE
  7. CLARITIN [Concomitant]
  8. ASPIRIN [Concomitant]
     Active Substance: ASPIRIN
  9. LUPRON [Concomitant]
     Active Substance: LEUPROLIDE ACETATE

REACTIONS (1)
  - Hospitalisation [None]
